FAERS Safety Report 9754941 (Version 2)
Quarter: 2013Q4

REPORT INFORMATION
  Report Type: Report from Study
  Country: TR (occurrence: TR)
  Receive Date: 20131213
  Receipt Date: 20131213
  Transmission Date: 20140711
  Serious: Yes (Other)
  Sender: FDA-Public Use
  Company Number: TR-ABBVIE-13P-161-1130197-00

PATIENT
  Age: 47 Year
  Sex: Female
  Weight: 70 kg

DRUGS (8)
  1. HUMIRA [Suspect]
     Indication: ANKYLOSING SPONDYLITIS
     Route: 058
     Dates: start: 20130628, end: 20130801
  2. HUMIRA [Suspect]
     Route: 058
     Dates: start: 20130920
  3. METHOTREXATE [Concomitant]
     Indication: ANKYLOSING SPONDYLITIS
     Route: 048
  4. FOLBIOL [Concomitant]
     Indication: ANKYLOSING SPONDYLITIS
     Dosage: 100MG X 2/WEEK
     Route: 048
     Dates: start: 20110405, end: 20130801
  5. PREDNOL [Concomitant]
     Indication: ANKYLOSING SPONDYLITIS
     Route: 048
     Dates: start: 20110405, end: 20130801
  6. SALAZOPYRIN [Concomitant]
     Indication: ANKYLOSING SPONDYLITIS
     Route: 048
  7. LEVOTIRON [Concomitant]
     Indication: HYPERTHYROIDISM
     Route: 048
  8. INH [Concomitant]
     Indication: PRODUCT USED FOR UNKNOWN INDICATION

REACTIONS (2)
  - Hepatic enzyme increased [Recovered/Resolved]
  - Pain [Recovering/Resolving]
